FAERS Safety Report 18281498 (Version 1)
Quarter: 2020Q3

REPORT INFORMATION
  Report Type: Spontaneous
  Country: US (occurrence: US)
  Receive Date: 20200917
  Receipt Date: 20200917
  Transmission Date: 20201103
  Serious: Yes (Hospitalization)
  Sender: FDA-Public Use
  Company Number: None

PATIENT
  Sex: Male

DRUGS (18)
  1. ASPIRIN. [Concomitant]
     Active Substance: ASPIRIN
  2. FERROUS SULF [Concomitant]
     Active Substance: FERROUS SULFATE
  3. FUROSEMIDE. [Concomitant]
     Active Substance: FUROSEMIDE
  4. KEPPRA [Concomitant]
     Active Substance: LEVETIRACETAM
  5. ELIQUIS [Concomitant]
     Active Substance: APIXABAN
  6. LEVOTHYROXIN [Concomitant]
     Active Substance: LEVOTHYROXINE
  7. ESCITALOPRAM [Concomitant]
     Active Substance: ESCITALOPRAM OXALATE
  8. METOPROLOL. [Concomitant]
     Active Substance: METOPROLOL
  9. DRISDOL [Concomitant]
     Active Substance: ERGOCALCIFEROL
  10. LANTUS [Concomitant]
     Active Substance: INSULIN GLARGINE
  11. MYCOPHENOLATE [Suspect]
     Active Substance: MYCOPHENOLIC ACID
     Indication: RENAL TRANSPLANT
     Route: 048
     Dates: start: 20130911
  12. CLONIDINE. [Concomitant]
     Active Substance: CLONIDINE
  13. TACROLIMUS. [Concomitant]
     Active Substance: TACROLIMUS
  14. CALCITRIOL. [Concomitant]
     Active Substance: CALCITRIOL
  15. CIPROFLOXACN [Concomitant]
     Active Substance: CIPROFLOXACIN
  16. AMLODIPINE [Concomitant]
     Active Substance: AMLODIPINE BESYLATE
  17. OMEPRAZOLE. [Concomitant]
     Active Substance: OMEPRAZOLE
  18. PREDNISONE. [Concomitant]
     Active Substance: PREDNISONE

REACTIONS (1)
  - Hospitalisation [None]
